FAERS Safety Report 8008981-4 (Version None)
Quarter: 2011Q4

REPORT INFORMATION
  Report Type: 
  Country: None (occurrence: None)
  Receive Date: 20111227
  Receipt Date: 20111221
  Transmission Date: 20120403
  Serious: No
  Sender: FDA-Public Use
  Company Number: US-PFIZER INC-2011311605

PATIENT
  Sex: Female
  Weight: 55.329 kg

DRUGS (2)
  1. ZOLOFT [Suspect]
     Dosage: 100 MG, DAILY
  2. ZOLOFT [Suspect]
     Indication: ANXIETY DISORDER
     Dosage: UNK
     Dates: start: 20070101

REACTIONS (4)
  - IRRITABILITY [None]
  - DRUG INEFFECTIVE [None]
  - ANGER [None]
  - FRUSTRATION [None]
